FAERS Safety Report 8587504-5 (Version None)
Quarter: 2012Q3

REPORT INFORMATION
  Report Type: 
  Country: None (occurrence: None)
  Receive Date: 20120810
  Receipt Date: 20120807
  Transmission Date: 20120928
  Serious: Yes (Hospitalization)
  Sender: FDA-Public Use
  Company Number: DE-ABBOTT-11P-062-0725156-00

PATIENT
  Sex: Male
  Weight: 69 kg

DRUGS (17)
  1. PREDNISOLONE [Concomitant]
  2. METOPROLOL TARTRATE [Concomitant]
     Indication: PRODUCT USED FOR UNKNOWN INDICATION
     Dosage: 1 TABLET OD
  3. TROSPIUM CHLORIDE [Concomitant]
     Indication: PRODUCT USED FOR UNKNOWN INDICATION
  4. FOSAMAX [Concomitant]
     Indication: PRODUCT USED FOR UNKNOWN INDICATION
     Dates: start: 20110101
  5. HYDROCHLOROTHIAZIDE [Concomitant]
     Indication: PRODUCT USED FOR UNKNOWN INDICATION
     Dosage: 12.5MG OD
  6. AGGRENOX [Concomitant]
     Indication: PRODUCT USED FOR UNKNOWN INDICATION
     Dosage: 25MG/200MG BID
  7. COLECALCIFEROL [Concomitant]
     Indication: PRODUCT USED FOR UNKNOWN INDICATION
  8. EZETIMIBE [Concomitant]
     Indication: PRODUCT USED FOR UNKNOWN INDICATION
     Dosage: 10/10 1 TAB DAILY
  9. ACTEMRA [Concomitant]
     Indication: PRODUCT USED FOR UNKNOWN INDICATION
  10. FINASTERID [Concomitant]
     Indication: PRODUCT USED FOR UNKNOWN INDICATION
  11. CALCILAC KT [Concomitant]
     Indication: PRODUCT USED FOR UNKNOWN INDICATION
  12. TOCILIZUMAB [Concomitant]
     Indication: RHEUMATOID ARTHRITIS
     Dosage: 560 MG
     Dates: start: 20110501
  13. ARAVA [Suspect]
     Indication: RHEUMATOID ARTHRITIS
     Route: 048
     Dates: start: 20070501, end: 20110401
  14. METFORMIN HYDROCHLORIDE [Concomitant]
     Indication: PRODUCT USED FOR UNKNOWN INDICATION
  15. HUMIRA [Suspect]
     Indication: RHEUMATOID ARTHRITIS
     Route: 058
     Dates: start: 20100429, end: 20110401
  16. PREDNISOLONE [Concomitant]
     Indication: RHEUMATOID ARTHRITIS
     Dates: start: 20110419
  17. OLMESARTAN MEDOXOMIL [Concomitant]
     Indication: PRODUCT USED FOR UNKNOWN INDICATION

REACTIONS (3)
  - RHEUMATOID NODULE [None]
  - UNEVALUABLE EVENT [None]
  - COUGH [None]
